FAERS Safety Report 6466513-6 (Version None)
Quarter: 2009Q4

REPORT INFORMATION
  Report Type: 
  Country: None (occurrence: None)
  Receive Date: 20091202
  Receipt Date: 20091123
  Transmission Date: 20100525
  Serious: Yes (Congenital Anomaly)
  Sender: FDA-Public Use
  Company Number: NL-TEVA-216171USA

PATIENT
  Sex: Female
  Weight: 3 kg

DRUGS (2)
  1. PIMOZIDE TABLETS [Suspect]
     Indication: DRUG EXPOSURE DURING PREGNANCY
     Route: 064
  2. PIMOZIDE TABLETS [Suspect]

REACTIONS (3)
  - CONGENITAL HYDRONEPHROSIS [None]
  - DOUBLE URETER [None]
  - VENTRICULAR SEPTAL DEFECT [None]
